FAERS Safety Report 10640557 (Version 1)
Quarter: 2014Q4

REPORT INFORMATION
  Report Type: Spontaneous
  Country: BR (occurrence: None)
  Receive Date: 20141205
  Receipt Date: 20141205
  Transmission Date: 20150529
  Serious: Yes (Other)
  Sender: FDA-Public Use
  Company Number: BR2014GSK029684

PATIENT
  Age: 30 Year
  Sex: Male

DRUGS (3)
  1. ABACAVIR (ABACAVIR SULPHATE) UNKNOWN [Suspect]
     Active Substance: ABACAVIR
     Indication: HIV INFECTION
  2. LAMIVUDINE (LAMIVUDINE) UNKNOWN [Suspect]
     Active Substance: LAMIVUDINE
     Indication: HIV INFECTION
  3. LOPINAVIR AND RITONAVIR [Suspect]
     Active Substance: LOPINAVIR\RITONAVIR
     Indication: HIV INFECTION

REACTIONS (10)
  - Dyspnoea [None]
  - Cough [None]
  - VIIth nerve paralysis [None]
  - Hemiplegia [None]
  - Hemiparesis [None]
  - Blindness [None]
  - Neurological symptom [None]
  - Aphasia [None]
  - Dysphagia [None]
  - Immune reconstitution inflammatory syndrome [None]
